FAERS Safety Report 22793414 (Version 6)
Quarter: 2025Q4

REPORT INFORMATION
  Report Type: Report from Study
  Country: US (occurrence: US)
  Receive Date: 20230807
  Receipt Date: 20251215
  Transmission Date: 20260118
  Serious: No
  Sender: PFIZER
  Company Number: US-PFIZER INC-202300149913

PATIENT
  Age: 89 Year
  Sex: Female
  Weight: 78 kg

DRUGS (2)
  1. MENEST [Suspect]
     Active Substance: ESTROGENS, ESTERIFIED
     Indication: Hormone replacement therapy
     Dosage: 0.625 MG, 3X WEEKLY
     Route: 048
     Dates: start: 196407
  2. MENEST [Suspect]
     Active Substance: ESTROGENS, ESTERIFIED
     Indication: Autoimmune thyroiditis
     Dosage: 0.3 MG

REACTIONS (4)
  - Off label use [Unknown]
  - Therapy interrupted [Unknown]
  - Product availability issue [Unknown]
  - Feeling of despair [Unknown]

NARRATIVE: CASE EVENT DATE: 19640701
